FAERS Safety Report 15298547 (Version 1)
Quarter: 2018Q3

REPORT INFORMATION
  Report Type: Spontaneous
  Country: FR (occurrence: FR)
  Receive Date: 20180820
  Receipt Date: 20180820
  Transmission Date: 20181010
  Serious: Yes (Life-Threatening)
  Sender: FDA-Public Use
  Company Number: FR-MUNDIPHARMA DS AND PHARMACOVIGILANCE-GBR-2014-0024383

PATIENT
  Age: 30 Year
  Sex: Female

DRUGS (11)
  1. LIDOCAINE. [Suspect]
     Active Substance: LIDOCAINE
     Indication: GENERAL ANAESTHESIA
     Dosage: 800 MG, UNK
     Route: 042
     Dates: start: 20140930, end: 20140930
  2. DEXAMETHASONE. [Suspect]
     Active Substance: DEXAMETHASONE
     Indication: GENERAL ANAESTHESIA
     Dosage: UNK
     Route: 042
     Dates: start: 20140930, end: 20140930
  3. NEFOPAM [Suspect]
     Active Substance: NEFOPAM
     Indication: GENERAL ANAESTHESIA
     Dosage: 120 MG, UNK
     Route: 042
     Dates: start: 20140930, end: 20140930
  4. PROPOFOL. [Suspect]
     Active Substance: PROPOFOL
     Indication: GENERAL ANAESTHESIA
     Dosage: UNK
     Route: 042
     Dates: start: 20140930, end: 20140930
  5. KETAMINE [Suspect]
     Active Substance: KETAMINE
     Indication: GENERAL ANAESTHESIA
     Dosage: UNK
     Route: 042
     Dates: start: 20140930, end: 20140930
  6. GABAPENTINE [Suspect]
     Active Substance: GABAPENTIN
     Indication: GENERAL ANAESTHESIA
     Dosage: 0.5 DF, DAILY
     Route: 048
     Dates: start: 20140929, end: 20140930
  7. FENTANYL. [Suspect]
     Active Substance: FENTANYL
     Indication: GENERAL ANAESTHESIA
     Dosage: UNK
     Route: 042
     Dates: start: 20140930, end: 20140930
  8. DROPERIDOL. [Suspect]
     Active Substance: DROPERIDOL
     Indication: GENERAL ANAESTHESIA
     Dosage: UNK
     Route: 042
     Dates: start: 20140930, end: 20140930
  9. CISATRACURIUM. [Suspect]
     Active Substance: CISATRACURIUM
     Indication: GENERAL ANAESTHESIA
     Dosage: UNK
     Route: 042
     Dates: start: 20140930, end: 20140930
  10. CEFUROXIME. [Suspect]
     Active Substance: CEFUROXIME
     Indication: GENERAL ANAESTHESIA
     Dosage: 1.5 G, UNK
     Route: 042
     Dates: start: 20140930, end: 20140930
  11. OXYNORM 10MG/ML SOLUTION INJECTABLE [Suspect]
     Active Substance: OXYCODONE HYDROCHLORIDE
     Indication: GENERAL ANAESTHESIA
     Dosage: 3 MG, DAILY
     Route: 042
     Dates: start: 20140930, end: 20140930

REACTIONS (3)
  - Hypotension [Recovered/Resolved]
  - Shock [Recovered/Resolved]
  - Angiopathy [Recovered/Resolved]

NARRATIVE: CASE EVENT DATE: 20140930
